FAERS Safety Report 5802691-7 (Version None)
Quarter: 2008Q3

REPORT INFORMATION
  Report Type: 
  Country: None (occurrence: None)
  Receive Date: 20080703
  Receipt Date: 20080604
  Transmission Date: 20090109
  Serious: Yes (Death, Hospitalization, Other)
  Sender: FDA-Public Use
  Company Number: 008-21880-08061801

PATIENT
  Age: 61 Year
  Sex: Female

DRUGS (6)
  1. REVLIMID [Suspect]
     Indication: MULTIPLE MYELOMA
     Dosage: 25 MG, DAYS 1-21 EVERY 28 DAYS., ORAL; 25 MG, EVERY OTHER DAY, ORAL
     Route: 048
     Dates: start: 20080404, end: 20080414
  2. REVLIMID [Suspect]
     Indication: MULTIPLE MYELOMA
     Dosage: 25 MG, DAYS 1-21 EVERY 28 DAYS., ORAL; 25 MG, EVERY OTHER DAY, ORAL
     Route: 048
     Dates: start: 20080222
  3. SODIUM CLODRONATE (CLODRONATE DISODIUM) [Concomitant]
  4. CARBAMAZEPINE [Concomitant]
  5. PANTOPRAZOLE SODIUM [Concomitant]
  6. RESPRIM FORTE (BACTRIM) [Concomitant]

REACTIONS (2)
  - DISEASE PROGRESSION [None]
  - FEBRILE NEUTROPENIA [None]
